FAERS Safety Report 10688215 (Version 1)
Quarter: 2015Q1

REPORT INFORMATION
  Report Type: Spontaneous
  Country: GB (occurrence: GB)
  Receive Date: 20150102
  Receipt Date: 20150102
  Transmission Date: 20150720
  Serious: Yes (Other)
  Sender: FDA-Public Use
  Company Number: GB-WATSON-2014-27770

PATIENT
  Age: 67 Year
  Sex: Male
  Weight: 76 kg

DRUGS (2)
  1. OMEPRAZOLE. [Concomitant]
     Active Substance: OMEPRAZOLE
     Indication: GASTROINTESTINAL PAIN
     Dosage: UNK
     Route: 065
     Dates: start: 201310, end: 201311
  2. TRIMETHOPRIM (UNKNOWN) [Suspect]
     Active Substance: TRIMETHOPRIM
     Indication: URINARY TRACT INFECTION
     Dosage: UNK
     Route: 065
     Dates: start: 201310

REACTIONS (3)
  - Depression [Unknown]
  - Mood swings [Unknown]
  - Withdrawal syndrome [Unknown]
